FAERS Safety Report 5034363-3 (Version None)
Quarter: 2006Q2

REPORT INFORMATION
  Report Type: 
  Country: None (occurrence: None)
  Receive Date: 20060626
  Receipt Date: 20060615
  Transmission Date: 20061013
  Serious: Yes (Other)
  Sender: FDA-Public Use
  Company Number: ES-ROCHE-451926

PATIENT
  Age: 46 Year
  Sex: Female
  Weight: 71 kg

DRUGS (3)
  1. INVIRASE [Suspect]
     Indication: DRUG USE FOR UNKNOWN INDICATION
     Route: 048
     Dates: start: 20060420, end: 20060506
  2. NORVIR [Suspect]
     Indication: DRUG USE FOR UNKNOWN INDICATION
     Route: 048
     Dates: start: 20060420, end: 20060506
  3. TRUVADA [Suspect]
     Indication: DRUG USE FOR UNKNOWN INDICATION
     Dosage: STRENGTH = 200/245/COATED TABLETS
     Route: 048
     Dates: start: 20060420, end: 20060506

REACTIONS (4)
  - APHTHOUS STOMATITIS [None]
  - DRY MOUTH [None]
  - FACE OEDEMA [None]
  - PARAESTHESIA [None]
